FAERS Safety Report 17637754 (Version 1)
Quarter: 2020Q2

REPORT INFORMATION
  Report Type: Spontaneous
  Country: PL (occurrence: PL)
  Receive Date: 20200407
  Receipt Date: 20200407
  Transmission Date: 20200713
  Serious: Yes (Other)
  Sender: FDA-Public Use
  Company Number: PL-PFIZER INC-2020138683

PATIENT
  Age: 19 Year
  Sex: Male

DRUGS (4)
  1. LEVETIRACETAM. [Suspect]
     Active Substance: LEVETIRACETAM
     Indication: PSYCHOMOTOR RETARDATION
     Dosage: UNKNOWN DOSE
  2. LACOSAMIDE. [Suspect]
     Active Substance: LACOSAMIDE
     Dosage: 100 MILLIGRAM, ONCE DAILY (QD)
  3. VALPROATE [Concomitant]
     Active Substance: VALPROIC ACID
     Dosage: UNK
  4. LACOSAMIDE. [Suspect]
     Active Substance: LACOSAMIDE
     Indication: SIMPLE PARTIAL SEIZURES
     Dosage: 300 MILLIGRAM, ONCE DAILY (QD)

REACTIONS (5)
  - Electroencephalogram abnormal [Unknown]
  - Disease recurrence [Recovered/Resolved]
  - Off label use [Unknown]
  - Seizure [Recovered/Resolved]
  - Product use in unapproved indication [Unknown]
